FAERS Safety Report 7499024-X (Version None)
Quarter: 2011Q2

REPORT INFORMATION
  Report Type: 
  Country: None (occurrence: None)
  Receive Date: 20110524
  Receipt Date: 20101221
  Transmission Date: 20111010
  Serious: Yes (Hospitalization, Other)
  Sender: FDA-Public Use
  Company Number: US-BAYER-201017830NA

PATIENT
  Age: 23 Year
  Sex: Female
  Weight: 54.422 kg

DRUGS (7)
  1. YAZ [Suspect]
     Indication: MENSTRUATION IRREGULAR
  2. YASMIN [Suspect]
     Indication: MENSTRUATION IRREGULAR
  3. YAZ [Suspect]
     Indication: CONTRACEPTION
     Dosage: UNK UNK, QD
     Route: 048
     Dates: start: 20070501, end: 20080401
  4. EXCEDRIN (MIGRAINE) [Concomitant]
     Indication: MIGRAINE
     Dosage: UNK
     Dates: end: 20080418
  5. YASMIN [Suspect]
     Indication: CONTRACEPTION
     Dosage: UNK UNK, QD
     Route: 048
     Dates: start: 20060101, end: 20070501
  6. ZYRTEC [Concomitant]
     Dosage: UNK
     Dates: end: 20080418
  7. LEVALBUTEROL HCL [Concomitant]
     Indication: ASTHMA
     Dosage: UNK
     Dates: end: 20080418

REACTIONS (6)
  - CEREBROVASCULAR ACCIDENT [None]
  - TRANSIENT ISCHAEMIC ATTACK [None]
  - HEADACHE [None]
  - PARALYSIS [None]
  - PAIN [None]
  - VERTIGO [None]
